FAERS Safety Report 4746072-6 (Version None)
Quarter: 2005Q3

REPORT INFORMATION
  Report Type: 
  Country: None (occurrence: None)
  Receive Date: 20050816
  Receipt Date: 20050804
  Transmission Date: 20060218
  Serious: Yes (Hospitalization)
  Sender: FDA-Public Use
  Company Number: US-ROCHE-413257

PATIENT
  Age: 5 Month
  Sex: Male
  Weight: 10.4 kg

DRUGS (1)
  1. KLONOPIN [Suspect]
     Indication: DRUG USE FOR UNKNOWN INDICATION
     Route: 048
     Dates: start: 20041201, end: 20041202

REACTIONS (13)
  - ABNORMAL BEHAVIOUR [None]
  - BRONCHIOLITIS [None]
  - DYSPHAGIA [None]
  - EYE MOVEMENT DISORDER [None]
  - FEELING DRUNK [None]
  - GASTROOESOPHAGEAL REFLUX DISEASE [None]
  - INCORRECT DOSE ADMINISTERED [None]
  - LETHARGY [None]
  - MEDICATION ERROR [None]
  - NERVOUS SYSTEM DISORDER [None]
  - OESOPHAGEAL CANDIDIASIS [None]
  - OVERDOSE [None]
  - PNEUMONIA ASPIRATION [None]
